FAERS Safety Report 15391898 (Version 1)
Quarter: 2018Q3

REPORT INFORMATION
  Report Type: Spontaneous
  Country: US (occurrence: US)
  Receive Date: 20180910
  Receipt Date: 20180910
  Transmission Date: 20181010
  Serious: No
  Sender: FDA-Public Use
  Company Number: None

PATIENT
  Age: 88 Year
  Sex: Female

DRUGS (4)
  1. PILOCARPINE. [Suspect]
     Active Substance: PILOCARPINE
     Indication: BURNING MOUTH SYNDROME
     Dosage: ?          QUANTITY:10 TABLET(S);?
     Route: 048
     Dates: start: 20170930, end: 20180910
  2. BABY ASPIRIN [Concomitant]
     Active Substance: ASPIRIN
  3. DAILY VITAMIN [Concomitant]
     Active Substance: VITAMINS
  4. VITAMIN B12 [Concomitant]
     Active Substance: CYANOCOBALAMIN

REACTIONS (2)
  - Malaise [None]
  - Nausea [None]

NARRATIVE: CASE EVENT DATE: 20180910
